FAERS Safety Report 9301252 (Version 8)
Quarter: 2015Q1

REPORT INFORMATION
  Report Type: Spontaneous
  Country: JP (occurrence: JP)
  Receive Date: 20130521
  Receipt Date: 20150304
  Transmission Date: 20150721
  Serious: Yes (Death, Hospitalization, Other)
  Sender: FDA-Public Use
  Company Number: JP-GLAXOSMITHKLINE-B0881625A

PATIENT
  Age: 62 Year
  Sex: Female

DRUGS (9)
  1. PREDONINE [Suspect]
     Active Substance: PREDNISOLONE\PREDNISOLONE ACETATE\PREDNISOLONE SODIUM SUCCINATE
     Dosage: 25 MG, 1D
     Route: 048
     Dates: start: 20131115, end: 20140110
  2. SILECE [Concomitant]
     Active Substance: FLUNITRAZEPAM
     Indication: INSOMNIA
     Dosage: 2 MG, QD
     Dates: start: 20130108, end: 20130513
  3. PREDONINE [Suspect]
     Active Substance: PREDNISOLONE\PREDNISOLONE ACETATE\PREDNISOLONE SODIUM SUCCINATE
     Dosage: 30 MG, 1D
     Route: 048
     Dates: start: 20130921, end: 20131114
  4. PAXIL CR [Concomitant]
     Active Substance: PAROXETINE HYDROCHLORIDE
     Indication: DEPRESSION
     Dosage: 25 MG, QD
     Dates: start: 20130212, end: 20130410
  5. PURSENNID [Concomitant]
     Active Substance: SENNOSIDES A AND B
     Indication: CONSTIPATION
     Dosage: 24 MG, QD
     Dates: start: 20130108, end: 20130313
  6. LAMOTRIGINE. [Suspect]
     Active Substance: LAMOTRIGINE
     Indication: AFFECT LABILITY
     Dosage: 25 MG, QD
     Route: 048
     Dates: start: 20130216, end: 20130327
  7. PREDONINE [Suspect]
     Active Substance: PREDNISOLONE\PREDNISOLONE ACETATE\PREDNISOLONE SODIUM SUCCINATE
     Indication: DRUG ERUPTION
     Dosage: 20 MG, 1D
     Route: 048
     Dates: start: 20130729, end: 20130920
  8. MAGMITT [Concomitant]
     Active Substance: MAGNESIUM OXIDE
     Indication: CONSTIPATION
     Dosage: 1 G, QD
     Dates: start: 20130131, end: 20130213
  9. LIMAS [Concomitant]
     Active Substance: LITHIUM CARBONATE
     Dosage: 400 MG, QD
     Dates: start: 20130108, end: 20130225

REACTIONS (17)
  - Cardiac failure [Fatal]
  - Vulval disorder [Recovering/Resolving]
  - Lip erosion [Recovering/Resolving]
  - Conjunctival hyperaemia [Recovering/Resolving]
  - Visual acuity reduced [Unknown]
  - Generalised erythema [Unknown]
  - Skin exfoliation [Unknown]
  - Drug eruption [Not Recovered/Not Resolved]
  - Drug eruption [Recovering/Resolving]
  - Rash [Unknown]
  - Depression [Unknown]
  - Pneumonia [Unknown]
  - Hypophagia [Unknown]
  - Oropharyngeal pain [Unknown]
  - Infectious pleural effusion [Unknown]
  - Rash [Recovering/Resolving]
  - Oral disorder [Unknown]

NARRATIVE: CASE EVENT DATE: 20130301
